FAERS Safety Report 22099673 (Version 1)
Quarter: 2023Q1

REPORT INFORMATION
  Report Type: Spontaneous
  Country: US (occurrence: US)
  Receive Date: 20230315
  Receipt Date: 20230315
  Transmission Date: 20230417
  Serious: No
  Sender: FDA-Public Use
  Company Number: US-BAYER-2023A028250

PATIENT
  Age: 61 Year
  Sex: Male

DRUGS (1)
  1. ASTEPRO [Suspect]
     Active Substance: AZELASTINE HYDROCHLORIDE
     Dosage: 1-2 SPRAY
     Dates: start: 202302, end: 202302

REACTIONS (3)
  - Rhinalgia [Recovered/Resolved]
  - Rash [None]
  - Erythema [None]

NARRATIVE: CASE EVENT DATE: 20230201
